FAERS Safety Report 17327415 (Version 2)
Quarter: 2020Q1

REPORT INFORMATION
  Report Type: Spontaneous
  Country: DE (occurrence: DE)
  Receive Date: 20200127
  Receipt Date: 20200205
  Transmission Date: 20200409
  Serious: Yes (Hospitalization, Other)
  Sender: FDA-Public Use
  Company Number: NVSC2020DE014291

PATIENT
  Age: 24 Year
  Sex: Female
  Weight: 78 kg

DRUGS (2)
  1. CLINDAMYCIN - 1 A PHARMA 600 MG FILMTABLETTEN [Suspect]
     Active Substance: CLINDAMYCIN
     Indication: PULPITIS DENTAL
     Dosage: 600 MG, Q8H (3X1 UBER 4 TAGE (NACH ZWEI DOSEN ABGESETZT))
     Route: 048
     Dates: start: 20191027, end: 20191028
  2. REMICADE [Concomitant]
     Active Substance: INFLIXIMAB
     Indication: CROHN^S DISEASE
     Dosage: 400 MG, 8 WEEK
     Route: 065
     Dates: start: 201908

REACTIONS (6)
  - Adverse reaction [Recovering/Resolving]
  - Swelling face [Recovered/Resolved]
  - Erythema [Recovered/Resolved]
  - Pruritus [Recovered/Resolved]
  - Angioedema [Recovered/Resolved]
  - Blister [Recovering/Resolving]

NARRATIVE: CASE EVENT DATE: 201910
